FAERS Safety Report 9142688 (Version 2)
Quarter: 2013Q2

REPORT INFORMATION
  Report Type: Spontaneous
  Country: US (occurrence: US)
  Receive Date: 20130306
  Receipt Date: 20130403
  Transmission Date: 20140414
  Serious: Yes (Disabling)
  Sender: FDA-Public Use
  Company Number: PHEH2013US003704

PATIENT
  Sex: Female
  Weight: 88 kg

DRUGS (7)
  1. DIOVAN HCT [Suspect]
     Indication: BLOOD PRESSURE ABNORMAL
     Dosage: 1 DF, QD (320 MG VALS AND 25 MG HCT)
     Route: 048
  2. WARFARIN [Concomitant]
     Indication: THROMBOSIS PROPHYLAXIS
     Dosage: 1 DF, UNK (IN THE NIGHT)
     Route: 048
  3. ATORVASTATIN [Concomitant]
     Indication: BLOOD CHOLESTEROL ABNORMAL
     Dosage: 10 MG, QHS
     Route: 048
  4. B-COMPLEX//VITAMIN B COMPLEX [Concomitant]
     Indication: NUTRITIONAL SUPPLEMENTATION
     Dosage: 1 DF DAILY
     Route: 048
  5. ASCORBIC ACID [Concomitant]
     Dosage: 500 MG, DAILY
     Route: 048
  6. ERGOCALCIFEROL [Concomitant]
     Dosage: UNK UKN, UNK
     Route: 048
  7. TIMOLOL [Concomitant]
     Indication: GLAUCOMA
     Dosage: 1 GTT OU, DAILY

REACTIONS (2)
  - Hearing impaired [Not Recovered/Not Resolved]
  - Alopecia [Not Recovered/Not Resolved]
